FAERS Safety Report 15484655 (Version 1)
Quarter: 2018Q4

REPORT INFORMATION
  Report Type: Spontaneous
  Country: US (occurrence: US)
  Receive Date: 20181010
  Receipt Date: 20181010
  Transmission Date: 20190205
  Serious: Yes (Life-Threatening, Hospitalization)
  Sender: FDA-Public Use
  Company Number: None

PATIENT
  Age: 65 Year
  Sex: Male
  Weight: 113.5 kg

DRUGS (24)
  1. CHOLECALCIFEROL 2000 IU DAILY [Concomitant]
  2. FEBUXOSTAT 80MG PO DAILY [Concomitant]
  3. MULTIVITAMIN 1 TABLET DAILY [Concomitant]
  4. RANITIDINE 150MG PO DAILY [Concomitant]
  5. LEVOFLOXACIN. [Suspect]
     Active Substance: LEVOFLOXACIN
     Indication: DEVICE RELATED INFECTION
     Route: 048
     Dates: start: 20171217, end: 20180105
  6. PHEYTOIN EXTENDED RELEASE CAPSULES 300MG BID [Concomitant]
  7. LEVOFLOXACIN. [Suspect]
     Active Substance: LEVOFLOXACIN
     Indication: ARTHRITIS INFECTIVE
     Route: 048
     Dates: start: 20171217, end: 20180105
  8. ALBUTEROL HFA 1 PUFF AS NEEDED [Concomitant]
     Dates: start: 20161001
  9. CALCIUM CARBONATE 1500MG PO DAILY [Concomitant]
  10. RISPERIDONE 3MG PO DAILY [Concomitant]
  11. ATORVASTATIN [Suspect]
     Active Substance: ATORVASTATIN
     Indication: ACUTE CORONARY SYNDROME
     Route: 048
  12. ATORVASTATIN [Suspect]
     Active Substance: ATORVASTATIN
     Indication: PROPHYLAXIS
     Route: 048
  13. ASPIRIN 325MG PO DAILY [Concomitant]
  14. EZETIMIBE 10MG PO DAILY [Concomitant]
  15. ISOSORBIDE MONONITRATE 30MG PO TWICE DAILY [Concomitant]
  16. METOPROLOL TARTRATE 25MG PO BID [Concomitant]
  17. TAMSULOSIN 0.4MG PO DAILY [Concomitant]
  18. TIOTROPIUM 18MCG INHALATION DAILY [Concomitant]
  19. CYANOCOBALAMIN 500 PO DAILY [Concomitant]
  20. OXYCODONE/ACETAMINOPHEN 7.5/325MG AS NEEDED [Concomitant]
  21. CLOPIDOGREL 75MG PO DAILY [Concomitant]
  22. FERROUS SULFATE 325MG PO TWICE DAILY [Concomitant]
  23. LEVOTHYROXINE 125MCG PO DAILY [Concomitant]
  24. SPIRONOLACTONE 25MG EVERY OTHER DAY [Concomitant]

REACTIONS (1)
  - Rhabdomyolysis [None]

NARRATIVE: CASE EVENT DATE: 20180105
